FAERS Safety Report 7770702-8 (Version None)
Quarter: 2011Q3

REPORT INFORMATION
  Report Type: 
  Country: None (occurrence: None)
  Receive Date: 20110922
  Receipt Date: 20110622
  Transmission Date: 20111222
  Serious: No
  Sender: FDA-Public Use
  Company Number: US-ASTRAZENECA-2011SE38005

PATIENT
  Age: 47 Year
  Sex: Female
  Weight: 108.9 kg

DRUGS (3)
  1. SEROQUEL [Suspect]
     Indication: BIPOLAR DISORDER
     Route: 048
  2. METFORMIN [Concomitant]
  3. KLONOPIN [Concomitant]

REACTIONS (6)
  - FOOT FRACTURE [None]
  - DRY MOUTH [None]
  - WEIGHT INCREASED [None]
  - DRUG DOSE OMISSION [None]
  - DIABETES MELLITUS [None]
  - INSOMNIA [None]
